FAERS Safety Report 18683506 (Version 2)
Quarter: 2021Q1

REPORT INFORMATION
  Report Type: Spontaneous
  Country: ES (occurrence: ES)
  Receive Date: 20201230
  Receipt Date: 20210112
  Transmission Date: 20210419
  Serious: Yes (Hospitalization)
  Sender: FDA-Public Use
  Company Number: ES-LUPIN PHARMACEUTICALS INC.-2020-11029

PATIENT
  Age: 53 Year
  Sex: Female

DRUGS (5)
  1. MESALAZINE [Concomitant]
     Active Substance: MESALAMINE
     Dosage: 4 GRAM, QD (ALONG WITH INFLIXIMAB)
     Route: 048
  2. METHYLPREDNISOLONE. [Suspect]
     Active Substance: METHYLPREDNISOLONE
     Indication: PROCTITIS ULCERATIVE
     Dosage: 60 MILLIGRAM, QD
     Route: 065
  3. MESALAZINE [Concomitant]
     Active Substance: MESALAMINE
     Indication: PROCTITIS ULCERATIVE
     Dosage: UNK, FORMULATION: FOAM; APPLIED EVERY NIGHT
     Route: 065
  4. INFLIXIMAB [Concomitant]
     Active Substance: INFLIXIMAB
     Indication: PROCTITIS ULCERATIVE
     Dosage: 5 MILLIGRAM/KILOGRAM
     Route: 065
  5. MESALAZINE [Concomitant]
     Active Substance: MESALAMINE
     Dosage: 500 MILLIGRAM, TID
     Route: 048
     Dates: start: 202002

REACTIONS (1)
  - Drug ineffective [Unknown]
